FAERS Safety Report 7062121-7 (Version None)
Quarter: 2010Q4

REPORT INFORMATION
  Report Type: 
  Country: None (occurrence: None)
  Receive Date: 20101026
  Receipt Date: 20101015
  Transmission Date: 20110411
  Serious: Yes (Other)
  Sender: FDA-Public Use
  Company Number: PHHY2010CA57472

PATIENT
  Sex: Female

DRUGS (1)
  1. ELIDEL [Suspect]
     Dosage: 1 %
     Route: 061
     Dates: start: 20060101, end: 20100101

REACTIONS (3)
  - BACK PAIN [None]
  - RASH [None]
  - SKIN DISCOLOURATION [None]
